FAERS Safety Report 12715513 (Version 1)
Quarter: 2016Q3

REPORT INFORMATION
  Report Type: Spontaneous
  Country: GB (occurrence: GB)
  Receive Date: 20160906
  Receipt Date: 20160906
  Transmission Date: 20161109
  Serious: Yes (Other)
  Sender: FDA-Public Use
  Company Number: GB-VELOXIS PHARMACEUTICALS-1057042

PATIENT
  Age: 3 Day
  Sex: Female

DRUGS (9)
  1. FERROUS SULFATE. [Concomitant]
     Active Substance: FERROUS SULFATE
  2. ENVARSUS XR [Suspect]
     Active Substance: TACROLIMUS
     Indication: PRODUCT USED FOR UNKNOWN INDICATION
     Route: 064
  3. DIHYDROCODEINE [Concomitant]
     Active Substance: DIHYDROCODEINE
  4. PARACETAMOL [Concomitant]
     Active Substance: ACETAMINOPHEN
  5. LABETALOL [Concomitant]
     Active Substance: LABETALOL\LABETALOL HYDROCHLORIDE
  6. SENNA [Concomitant]
     Active Substance: SENNA LEAF\SENNOSIDES\SENNOSIDES A AND B
  7. NIFEDIPINE. [Concomitant]
     Active Substance: NIFEDIPINE
  8. ASPIRIN. [Concomitant]
     Active Substance: ASPIRIN
  9. LACTULOSE. [Concomitant]
     Active Substance: LACTULOSE

REACTIONS (5)
  - Blood bilirubin increased [Recovering/Resolving]
  - Photosensitivity reaction [Recovering/Resolving]
  - Foetal exposure during pregnancy [Unknown]
  - Skin discolouration [Recovering/Resolving]
  - Premature baby [Unknown]
